FAERS Safety Report 15365362 (Version 1)
Quarter: 2018Q3

REPORT INFORMATION
  Report Type: Spontaneous
  Country: US (occurrence: US)
  Receive Date: 20180910
  Receipt Date: 20180910
  Transmission Date: 20181010
  Serious: No
  Sender: FDA-Public Use
  Company Number: US-PFIZER INC-2018360865

PATIENT
  Age: 39 Year
  Sex: Female
  Weight: 155.56 kg

DRUGS (4)
  1. TOPAMAX [Suspect]
     Active Substance: TOPIRAMATE
     Dosage: UNK
     Dates: start: 2008
  2. SOMA [Suspect]
     Active Substance: CARISOPRODOL
     Dosage: UNK
     Dates: start: 2008
  3. NORCO [Suspect]
     Active Substance: ACETAMINOPHEN\HYDROCODONE BITARTRATE
     Dosage: UNK
     Dates: start: 2008
  4. GABAPENTIN. [Suspect]
     Active Substance: GABAPENTIN
     Dosage: UNK
     Dates: start: 2008

REACTIONS (2)
  - Feeling abnormal [Unknown]
  - Euphoric mood [Unknown]
